FAERS Safety Report 4963677-8 (Version None)
Quarter: 2006Q1

REPORT INFORMATION
  Report Type: 
  Country: None (occurrence: None)
  Receive Date: 20060330
  Receipt Date: 20060321
  Transmission Date: 20060701
  Serious: Yes (Hospitalization)
  Sender: FDA-Public Use
  Company Number: 200602874

PATIENT
  Sex: Female

DRUGS (1)
  1. DYSPORT (BOTULINUM TOXIN TYPE A) [Suspect]
     Indication: SKIN WRINKLING
     Dosage: 40 UNITS ONCE IM
     Route: 030
     Dates: start: 20051208, end: 20051208

REACTIONS (6)
  - EYELID DISORDER [None]
  - NAUSEA [None]
  - PYREXIA [None]
  - TUNNEL VISION [None]
  - VERTIGO [None]
  - VOMITING [None]
